FAERS Safety Report 7620939-3 (Version None)
Quarter: 2011Q3

REPORT INFORMATION
  Report Type: 
  Country: None (occurrence: None)
  Receive Date: 20110719
  Receipt Date: 20110713
  Transmission Date: 20111222
  Serious: Yes (Hospitalization)
  Sender: FDA-Public Use
  Company Number: US-MERCK-1104USA02455

PATIENT
  Age: 60 Year
  Sex: Male
  Weight: 130 kg

DRUGS (2)
  1. JANUMET [Suspect]
     Indication: BLOOD GLUCOSE INCREASED
     Route: 048
     Dates: start: 20080701, end: 20100701
  2. GLYBURIDE [Concomitant]
     Route: 065

REACTIONS (5)
  - DIABETIC FOOT [None]
  - BLOOD CREATININE INCREASED [None]
  - ATRIAL FIBRILLATION [None]
  - BLOOD UREA INCREASED [None]
  - TYPE 2 DIABETES MELLITUS [None]
